FAERS Safety Report 4950009-4 (Version None)
Quarter: 2006Q1

REPORT INFORMATION
  Report Type: 
  Country: None (occurrence: None)
  Receive Date: 20060315
  Receipt Date: 20060227
  Transmission Date: 20060701
  Serious: Yes (Life-Threatening)
  Sender: FDA-Public Use
  Company Number: JP200601005207

PATIENT
  Age: 46 Year
  Sex: Male
  Weight: 39.2 kg

DRUGS (9)
  1. ZYPREXA [Suspect]
     Indication: SCHIZOTYPAL PERSONALITY DISORDER
     Dosage: 5 MG, DAILY (1/D), ORAL; 10 MG, DAILY (1/D), ORAL
     Route: 048
     Dates: start: 20060106, end: 20060109
  2. ZYPREXA [Suspect]
     Indication: SCHIZOTYPAL PERSONALITY DISORDER
     Dosage: 5 MG, DAILY (1/D), ORAL; 10 MG, DAILY (1/D), ORAL
     Route: 048
     Dates: start: 20060110, end: 20060116
  3. ROHYPNOL (FLUNITRAZEPAM) [Concomitant]
  4. PAXIL [Concomitant]
  5. ALPRAZOLAM [Concomitant]
  6. SHINLUCK (SODIUM PICOSULFATE) [Concomitant]
  7. SENNOSIDE A+B (SENNOSIDE A+B) [Concomitant]
  8. HIBERNA (PROMETHAZINE HYDROCHLORIDE) [Concomitant]
  9. VOLTAREN [Concomitant]

REACTIONS (4)
  - C-REACTIVE PROTEIN INCREASED [None]
  - LYMPHOCYTE STIMULATION TEST POSITIVE [None]
  - PANCYTOPENIA [None]
  - PYREXIA [None]
